FAERS Safety Report 26168793 (Version 1)
Quarter: 2025Q4

REPORT INFORMATION
  Report Type: Report from Study
  Country: CA (occurrence: CA)
  Receive Date: 20251217
  Receipt Date: 20251217
  Transmission Date: 20260118
  Serious: Yes (Hospitalization, Other)
  Sender: ABBVIE
  Company Number: CA-ABBVIE-6591892

PATIENT
  Sex: Male

DRUGS (3)
  1. SKYRIZI [Suspect]
     Active Substance: RISANKIZUMAB-RZAA
     Indication: Hidradenitis
     Dosage: FORM STRENGTH: 360MG/2.4ML, INJECT 360 MG SUBCUTANEOU SLY AT WEEK ?12 AND EVERY 8 WEEKS THEREAFTE...
     Route: 058
     Dates: end: 202508
  2. SKYRIZI [Suspect]
     Active Substance: RISANKIZUMAB-RZAA
     Indication: Crohn^s disease
  3. HADLIMA [Concomitant]
     Active Substance: ADALIMUMAB-BWWD
     Indication: Hidradenitis
     Dates: start: 202511

REACTIONS (4)
  - Small intestinal resection [Recovered/Resolved]
  - Crohn^s disease [Recovered/Resolved]
  - Renal cell carcinoma [Recovered/Resolved]
  - Infection [Recovered/Resolved]
